FAERS Safety Report 10013558 (Version 48)
Quarter: 2018Q3

REPORT INFORMATION
  Report Type: Spontaneous
  Country: CA (occurrence: CA)
  Receive Date: 20140315
  Receipt Date: 20180919
  Transmission Date: 20181010
  Serious: Yes (Life-Threatening, Hospitalization, Other)
  Sender: FDA-Public Use
  Company Number: CA-ROCHE-1365636

PATIENT
  Age: 53 Year
  Sex: Male
  Weight: 72 kg

DRUGS (25)
  1. SYMBICORT [Concomitant]
     Active Substance: BUDESONIDE\FORMOTEROL FUMARATE DIHYDRATE
     Indication: PRODUCT USED FOR UNKNOWN INDICATION
     Route: 065
  2. XOLAIR [Suspect]
     Active Substance: OMALIZUMAB
     Route: 058
     Dates: start: 20171113
  3. XOLAIR [Suspect]
     Active Substance: OMALIZUMAB
     Indication: ASTHMA
     Route: 058
     Dates: start: 20131105
  4. XOLAIR [Suspect]
     Active Substance: OMALIZUMAB
     Route: 058
     Dates: start: 20160203
  5. XOLAIR [Suspect]
     Active Substance: OMALIZUMAB
     Route: 058
     Dates: start: 20160302
  6. XOLAIR [Suspect]
     Active Substance: OMALIZUMAB
     Route: 058
     Dates: start: 20170124
  7. XOLAIR [Suspect]
     Active Substance: OMALIZUMAB
     Route: 058
     Dates: start: 20180321
  8. XOLAIR [Suspect]
     Active Substance: OMALIZUMAB
     Route: 058
     Dates: start: 20160706
  9. XOLAIR [Suspect]
     Active Substance: OMALIZUMAB
     Route: 058
     Dates: start: 20170322
  10. XOLAIR [Suspect]
     Active Substance: OMALIZUMAB
     Route: 058
     Dates: start: 20180418
  11. XOLAIR [Suspect]
     Active Substance: OMALIZUMAB
     Route: 058
     Dates: start: 20180614
  12. XOLAIR [Suspect]
     Active Substance: OMALIZUMAB
     Route: 058
     Dates: start: 20180808
  13. XOLAIR [Suspect]
     Active Substance: OMALIZUMAB
     Route: 058
     Dates: start: 20150218
  14. XOLAIR [Suspect]
     Active Substance: OMALIZUMAB
     Route: 058
     Dates: start: 20170425
  15. XOLAIR [Suspect]
     Active Substance: OMALIZUMAB
     Route: 058
     Dates: start: 20180517
  16. SINGULAIR [Concomitant]
     Active Substance: MONTELUKAST SODIUM
     Indication: PRODUCT USED FOR UNKNOWN INDICATION
     Route: 065
  17. SPIRIVA [Concomitant]
     Active Substance: TIOTROPIUM BROMIDE MONOHYDRATE
     Indication: PRODUCT USED FOR UNKNOWN INDICATION
     Route: 065
  18. XOLAIR [Suspect]
     Active Substance: OMALIZUMAB
     Route: 058
     Dates: start: 20180215
  19. XOLAIR [Suspect]
     Active Substance: OMALIZUMAB
     Route: 058
     Dates: start: 20180711
  20. XOLAIR [Suspect]
     Active Substance: OMALIZUMAB
     Route: 058
     Dates: start: 20160524
  21. XOLAIR [Suspect]
     Active Substance: OMALIZUMAB
     Route: 058
     Dates: start: 20170815
  22. XOLAIR [Suspect]
     Active Substance: OMALIZUMAB
     Route: 058
     Dates: start: 20141015
  23. XOLAIR [Suspect]
     Active Substance: OMALIZUMAB
     Route: 058
     Dates: start: 20160622
  24. XOLAIR [Suspect]
     Active Substance: OMALIZUMAB
     Route: 058
     Dates: start: 20161129
  25. XOLAIR [Suspect]
     Active Substance: OMALIZUMAB
     Route: 058
     Dates: start: 20180113

REACTIONS (53)
  - Chronic obstructive pulmonary disease [Unknown]
  - Dyspnoea exertional [Unknown]
  - Dyspnoea [Unknown]
  - Lung disorder [Unknown]
  - Malaise [Recovering/Resolving]
  - Muscle spasms [Unknown]
  - Pain [Not Recovered/Not Resolved]
  - Nasopharyngitis [Unknown]
  - Nasal congestion [Unknown]
  - Fear [Unknown]
  - Weight increased [Unknown]
  - Hot flush [Unknown]
  - Sputum discoloured [Unknown]
  - Pain in extremity [Not Recovered/Not Resolved]
  - Back pain [Unknown]
  - Blood pressure increased [Unknown]
  - Skin lesion [Unknown]
  - Asthenia [Unknown]
  - Eating disorder [Unknown]
  - Panic attack [Unknown]
  - Chest pain [Unknown]
  - General physical health deterioration [Unknown]
  - Gait disturbance [Recovering/Resolving]
  - Musculoskeletal stiffness [Unknown]
  - Influenza [Recovered/Resolved]
  - Burning sensation [Unknown]
  - Coma [Recovered/Resolved]
  - Fatigue [Not Recovered/Not Resolved]
  - Injection site pain [Unknown]
  - Paralysis [Unknown]
  - Scratch [Unknown]
  - Stress [Unknown]
  - Cardiac disorder [Unknown]
  - Somnolence [Unknown]
  - Heart rate increased [Unknown]
  - Temperature intolerance [Recovering/Resolving]
  - Oxygen saturation decreased [Unknown]
  - Fall [Unknown]
  - Anxiety [Unknown]
  - Mobility decreased [Recovering/Resolving]
  - Feeling abnormal [Unknown]
  - Productive cough [Unknown]
  - Humidity intolerance [Recovering/Resolving]
  - Lung infection [Unknown]
  - Odynophagia [Unknown]
  - Dysphonia [Recovering/Resolving]
  - Asthma [Recovering/Resolving]
  - Bronchitis [Unknown]
  - Pruritus [Unknown]
  - Gait inability [Recovering/Resolving]
  - Pneumonia [Unknown]
  - Urticaria [Unknown]
  - Muscular weakness [Unknown]

NARRATIVE: CASE EVENT DATE: 20131119
